FAERS Safety Report 25670549 (Version 2)
Quarter: 2025Q3

REPORT INFORMATION
  Report Type: Other
  Country: EU (occurrence: EU)
  Receive Date: 20250812
  Receipt Date: 20250813
  Transmission Date: 20251021
  Serious: Yes (Hospitalization, Disabling, Other)
  Sender: EMD SERONO INC
  Company Number: None

PATIENT
  Age: 81 Year
  Sex: Male

DRUGS (12)
  1. LEVOTHYROXINE [Suspect]
     Active Substance: LEVOTHYROXINE
     Indication: Product used for unknown indication
  2. SIMVASTATIN [Suspect]
     Active Substance: SIMVASTATIN
     Indication: Product used for unknown indication
  3. ESOMEPRAZOLE [Suspect]
     Active Substance: ESOMEPRAZOLE
     Indication: Product used for unknown indication
  4. FOLIC ACID [Suspect]
     Active Substance: FOLIC ACID
     Indication: Product used for unknown indication
  5. LACTULOSE [Suspect]
     Active Substance: LACTULOSE
     Indication: Product used for unknown indication
  6. METAMIZOLE [Suspect]
     Active Substance: METAMIZOLE
     Indication: Product used for unknown indication
     Dosage: 575 MILLIGRAMS TWICE A DAY
  7. MONTELUKAST [Suspect]
     Active Substance: MONTELUKAST
     Indication: Product used for unknown indication
  8. ACETAMINOPHEN\TRAMADOL [Suspect]
     Active Substance: ACETAMINOPHEN\TRAMADOL
     Indication: Product used for unknown indication
     Dosage: 75 PLUS 650 MILLIGRAMS THRICE A DAY
  9. RAMIPRIL [Suspect]
     Active Substance: RAMIPRIL
     Indication: Product used for unknown indication
  10. TOPIRAMATE [Suspect]
     Active Substance: TOPIRAMATE
     Indication: Product used for unknown indication
     Dosage: 50 MILLIGRAMS, 2 TABLETS IN MORNING AND 2 TABLETS IN NIGHT
  11. TRAZODONE [Suspect]
     Active Substance: TRAZODONE HYDROCHLORIDE
     Indication: Product used for unknown indication
  12. VENLAFAXINE [Suspect]
     Active Substance: VENLAFAXINE HYDROCHLORIDE
     Indication: Product used for unknown indication

REACTIONS (14)
  - Spinal fracture [Recovered/Resolved]
  - Renal failure [Recovered/Resolved]
  - Gait inability [Recovered/Resolved]
  - Fall [Recovered/Resolved]
  - Pain [Recovered/Resolved]
  - Apathy [Recovered/Resolved]
  - Decreased appetite [Recovered/Resolved]
  - Hypotension [Recovered/Resolved]
  - Mutism [Recovered/Resolved]
  - Abnormal loss of weight [Recovered/Resolved]
  - Diarrhoea [Recovered/Resolved]
  - Vomiting [Recovered/Resolved]
  - Nausea [Recovered/Resolved]
  - Product use issue [Unknown]
